FAERS Safety Report 11636943 (Version 2)
Quarter: 2015Q4

REPORT INFORMATION
  Report Type: Spontaneous
  Country: CH (occurrence: CH)
  Receive Date: 20151016
  Receipt Date: 20151023
  Transmission Date: 20160304
  Serious: Yes (Life-Threatening)
  Sender: FDA-Public Use
  Company Number: CH-PFIZER INC-2015349512

PATIENT
  Age: 25 Year
  Sex: Female

DRUGS (10)
  1. FLECTOR [Suspect]
     Active Substance: DICLOFENAC EPOLAMINE
     Indication: LIGAMENT SPRAIN
     Dosage: 180 MG, UNK
     Route: 003
     Dates: start: 20150523, end: 20150716
  2. VOLTAREN [Suspect]
     Active Substance: DICLOFENAC SODIUM
     Indication: LIGAMENT SPRAIN
     Dosage: 150 MG, UNK
     Route: 048
     Dates: start: 20150523, end: 20150701
  3. PANTOPRAZOLE MEPHA [Suspect]
     Active Substance: PANTOPRAZOLE SODIUM
     Indication: GASTRITIS PROPHYLAXIS
     Dosage: 20 MG, UNK
     Route: 048
     Dates: start: 20150701, end: 20150704
  4. TOBRADEX [Concomitant]
     Active Substance: DEXAMETHASONE\TOBRAMYCIN
     Dosage: UNK
     Dates: start: 20150716, end: 20150717
  5. FLUCONAZOLE. [Concomitant]
     Active Substance: FLUCONAZOLE
     Dosage: UNK
     Dates: start: 20150716, end: 20150716
  6. ALGIFOR [Concomitant]
     Active Substance: IBUPROFEN
     Dosage: UNK
     Dates: start: 20150714, end: 20150714
  7. XYZAL [Concomitant]
     Active Substance: LEVOCETIRIZINE DIHYDROCHLORIDE
     Dosage: UNK
     Dates: start: 20150716, end: 20150716
  8. NOVALGIN [Suspect]
     Active Substance: METAMIZOLE SODIUM
     Indication: EPICONDYLITIS
     Dosage: 1500 MG, UNK
     Route: 048
     Dates: start: 20150701, end: 20150716
  9. GADOLINIUM [Suspect]
     Active Substance: GADOLINIUM
     Indication: NUCLEAR MAGNETIC RESONANCE IMAGING
     Dosage: UNK
     Route: 040
     Dates: start: 20150707, end: 20150707
  10. OLFEN /00372302/ [Suspect]
     Active Substance: DICLOFENAC SODIUM
     Indication: LIGAMENT SPRAIN
     Dosage: UNK
     Route: 003
     Dates: start: 20150523, end: 20150716

REACTIONS (10)
  - Cough [Recovering/Resolving]
  - Lung infiltration [Recovering/Resolving]
  - General physical health deterioration [Recovering/Resolving]
  - Chills [Recovering/Resolving]
  - Headache [Recovering/Resolving]
  - Dyspnoea [Recovering/Resolving]
  - Nausea [Recovering/Resolving]
  - Respiratory failure [Recovering/Resolving]
  - Toxic epidermal necrolysis [Recovering/Resolving]
  - Pyrexia [Recovering/Resolving]

NARRATIVE: CASE EVENT DATE: 201507
